FAERS Safety Report 5868768-5 (Version None)
Quarter: 2008Q3

REPORT INFORMATION
  Report Type: 
  Country: None (occurrence: None)
  Receive Date: 20080902
  Receipt Date: 20080902
  Transmission Date: 20090109
  Serious: Yes (Hospitalization)
  Sender: FDA-Public Use
  Company Number: None

PATIENT
  Age: 52 Year
  Sex: Female
  Weight: 61.2356 kg

DRUGS (1)
  1. PATANASE [Suspect]
     Indication: SINUS DISORDER
     Dosage: 2 SPRAYS IN EACH NOSTRIL ONCE A DAY NASAL
     Route: 045
     Dates: start: 20080722, end: 20080722

REACTIONS (17)
  - BLOOD PRESSURE DECREASED [None]
  - ECONOMIC PROBLEM [None]
  - FALL [None]
  - FEELING ABNORMAL [None]
  - GAIT DISTURBANCE [None]
  - HAEMORRHAGE [None]
  - HEAD INJURY [None]
  - IMPAIRED WORK ABILITY [None]
  - LOSS OF CONSCIOUSNESS [None]
  - MIDDLE INSOMNIA [None]
  - MULTIPLE INJURIES [None]
  - PAIN [None]
  - PULSE ABSENT [None]
  - RESPIRATORY ARREST [None]
  - SCAR [None]
  - SKIN LACERATION [None]
  - SOMNOLENCE [None]
